FAERS Safety Report 7293442-0 (Version None)
Quarter: 2011Q1

REPORT INFORMATION
  Report Type: 
  Country: None (occurrence: None)
  Receive Date: 20110215
  Receipt Date: 20110209
  Transmission Date: 20110831
  Serious: No
  Sender: FDA-Public Use
  Company Number: US-PFIZER INC-2011029594

PATIENT
  Sex: Female
  Weight: 65.3 kg

DRUGS (1)
  1. DEPO-PROVERA [Suspect]
     Indication: CONTRACEPTION
     Dosage: UNK
     Route: 030
     Dates: start: 20110117

REACTIONS (3)
  - MENORRHAGIA [None]
  - VAGINAL DISCHARGE [None]
  - DYSMENORRHOEA [None]
